FAERS Safety Report 15889423 (Version 1)
Quarter: 2019Q1

REPORT INFORMATION
  Report Type: Spontaneous
  Country: US (occurrence: US)
  Receive Date: 20190109
  Receipt Date: 20190109
  Transmission Date: 20190417
  Serious: No
  Sender: FDA-Public Use
  Company Number: None

PATIENT
  Age: 39 Year
  Sex: Female
  Weight: 113.4 kg

DRUGS (1)
  1. RASUVO [Suspect]
     Active Substance: METHOTREXATE SODIUM
     Indication: CONNECTIVE TISSUE DISORDER
     Dosage: ?          OTHER DOSE:10MG (0.2ML); WEEKLY ON THE SAME DAY EACH WEEK AS DIRECTED?
     Route: 058
     Dates: start: 201811

REACTIONS (2)
  - Alopecia [None]
  - Dysgeusia [None]
